FAERS Safety Report 10080269 (Version 1)
Quarter: 2014Q2

REPORT INFORMATION
  Report Type: Spontaneous
  Country: SE (occurrence: SE)
  Receive Date: 20140415
  Receipt Date: 20140415
  Transmission Date: 20141212
  Serious: Yes (Other)
  Sender: FDA-Public Use
  Company Number: PHHY2014SE041824

PATIENT
  Age: 74 Year
  Sex: Male

DRUGS (4)
  1. OXALIPLATIN [Suspect]
     Indication: CHEMOTHERAPY
  2. CAPECITABINE [Suspect]
     Indication: CHEMOTHERAPY
     Dates: start: 201212
  3. IRINOTECAN [Suspect]
     Dates: start: 201212
  4. BEVACIZUMAB [Suspect]
     Indication: CHEMOTHERAPY

REACTIONS (8)
  - Neuropathy peripheral [Recovering/Resolving]
  - Metastases to lung [Recovering/Resolving]
  - Metastases to lymph nodes [Recovering/Resolving]
  - Malignant neoplasm progression [Unknown]
  - Metastases to liver [Recovering/Resolving]
  - Aspartate aminotransferase increased [Recovering/Resolving]
  - Alanine aminotransferase increased [Recovering/Resolving]
  - Drug effect incomplete [Unknown]
